FAERS Safety Report 18571075 (Version 1)
Quarter: 2020Q4

REPORT INFORMATION
  Report Type: Spontaneous
  Country: US (occurrence: US)
  Receive Date: 20201202
  Receipt Date: 20201202
  Transmission Date: 20210114
  Serious: No
  Sender: FDA-Public Use
  Company Number: US-NOVEN PHARMACEUTICALS, INC.-US2019000690

PATIENT

DRUGS (2)
  1. MINIVELLE [Suspect]
     Active Substance: ESTRADIOL
     Indication: NIGHT SWEATS
  2. MINIVELLE [Suspect]
     Active Substance: ESTRADIOL
     Indication: HOT FLUSH
     Dosage: 0.1 MG, UNKNOWN
     Route: 062

REACTIONS (5)
  - Therapeutic product ineffective [Not Recovered/Not Resolved]
  - Anger [Not Recovered/Not Resolved]
  - Product quality issue [Not Recovered/Not Resolved]
  - Crying [Not Recovered/Not Resolved]
  - Mood altered [Not Recovered/Not Resolved]

NARRATIVE: CASE EVENT DATE: 201911
